FAERS Safety Report 4643096-4 (Version None)
Quarter: 2005Q2

REPORT INFORMATION
  Report Type: 
  Country: None (occurrence: None)
  Receive Date: 20050421
  Receipt Date: 20050408
  Transmission Date: 20051028
  Serious: Yes (Other)
  Sender: FDA-Public Use
  Company Number: HQWYE887508MAR05

PATIENT
  Age: 65 Year
  Sex: Female
  Weight: 63.56 kg

DRUGS (2)
  1. ADVIL [Suspect]
     Indication: HEADACHE
     Dosage: 2 LIQUI-GELS ONCE, ORAL
     Route: 048
     Dates: start: 20041002, end: 20041002
  2. ASPIRIN [Concomitant]

REACTIONS (1)
  - HYPERSENSITIVITY [None]
